FAERS Safety Report 10970575 (Version 4)
Quarter: 2015Q2

REPORT INFORMATION
  Report Type: Spontaneous
  Country: PT (occurrence: PT)
  Receive Date: 20150331
  Receipt Date: 20150427
  Transmission Date: 20150821
  Serious: Yes (Death, Hospitalization)
  Sender: FDA-Public Use
  Company Number: PT-BRISTOL-MYERS SQUIBB COMPANY-BMS-2015-019018

PATIENT
  Age: 6 Decade
  Sex: Male

DRUGS (1)
  1. YERVOY [Suspect]
     Active Substance: IPILIMUMAB
     Indication: METASTATIC MALIGNANT MELANOMA
     Route: 065

REACTIONS (6)
  - Asthenia [Unknown]
  - Haemoglobin decreased [Unknown]
  - Cachexia [Unknown]
  - General physical health deterioration [Unknown]
  - Renal impairment [Unknown]
  - Death [Fatal]
